FAERS Safety Report 5132942-6 (Version None)
Quarter: 2006Q4

REPORT INFORMATION
  Report Type: 
  Country: None (occurrence: None)
  Receive Date: 20061019
  Receipt Date: 20061019
  Transmission Date: 20070319
  Serious: Yes (Hospitalization)
  Sender: FDA-Public Use
  Company Number: None

PATIENT
  Age: 55 Year
  Sex: Male
  Weight: 81.2 kg

DRUGS (10)
  1. CISPLATIN [Suspect]
  2. DIAZEPAM [Concomitant]
  3. HYDROCODONE 7.5/ACETAMINOPHEN 500MG [Concomitant]
  4. APREPITANT [Concomitant]
  5. ETOPOSIDE [Concomitant]
  6. DIPHENH/LIDOCAINE/MAALOX/NYSTATIN LIQ [Concomitant]
  7. CITALOPRAM HYDROBROMIDE [Concomitant]
  8. ALBUTEROL 90/IPRATROP 18MCG [Concomitant]
  9. LORATADINE [Concomitant]
  10. GABAPENTIN [Concomitant]

REACTIONS (3)
  - DEHYDRATION [None]
  - NAUSEA [None]
  - VOMITING [None]
